FAERS Safety Report 9531419 (Version 1)
Quarter: 2013Q3

REPORT INFORMATION
  Report Type: Report from Study
  Country: US (occurrence: US)
  Receive Date: 20130918
  Receipt Date: 20130918
  Transmission Date: 20140515
  Serious: Yes (Hospitalization)
  Sender: FDA-Public Use
  Company Number: US-ROCHE-1277288

PATIENT
  Age: 47 Year
  Sex: Female

DRUGS (6)
  1. ALTEPLASE [Suspect]
     Indication: PRODUCT USED FOR UNKNOWN INDICATION
     Dosage: STARTED 50CC/HR X 2HRS
     Route: 042
     Dates: start: 20130823
  2. HEPARIN [Concomitant]
     Indication: DEEP VEIN THROMBOSIS
     Dosage: STOPPED V/O PER MD 5000 UNT BOLUS (1000/HR INFUS)
     Route: 065
  3. HEPARIN [Concomitant]
     Indication: ARTERIAL THROMBOSIS
  4. HEPARIN [Concomitant]
     Indication: INTRACARDIAC THROMBUS
  5. HEPARIN [Concomitant]
     Indication: PULMONARY EMBOLISM
  6. HEPARIN [Concomitant]
     Indication: PERIPHERAL ISCHAEMIA

REACTIONS (2)
  - Dyspnoea [Unknown]
  - Hyperhidrosis [Unknown]
